FAERS Safety Report 7776994-3 (Version None)
Quarter: 2011Q3

REPORT INFORMATION
  Report Type: 
  Country: None (occurrence: None)
  Receive Date: 20110926
  Receipt Date: 20110926
  Transmission Date: 20111222
  Serious: Yes (Other)
  Sender: FDA-Public Use
  Company Number: None

PATIENT
  Age: 65 Year
  Sex: Male

DRUGS (1)
  1. HUMIRA [Suspect]
     Indication: PSORIASIS
     Dosage: 40MG
     Route: 058
     Dates: start: 20101102, end: 20110901

REACTIONS (1)
  - SYSTEMIC LUPUS ERYTHEMATOSUS [None]
